FAERS Safety Report 6401180-9 (Version None)
Quarter: 2009Q4

REPORT INFORMATION
  Report Type: 
  Country: None (occurrence: None)
  Receive Date: 20091009
  Receipt Date: 20091009
  Transmission Date: 20100525
  Serious: Yes (Hospitalization)
  Sender: FDA-Public Use
  Company Number: None

PATIENT
  Sex: Female

DRUGS (2)
  1. GENTAK [Suspect]
     Indication: PROPHYLAXIS
     Dosage: ONE TIME ONLY
     Dates: start: 20091005, end: 20091005
  2. GENTAK [Suspect]

REACTIONS (2)
  - BLISTER [None]
  - DERMATITIS CONTACT [None]
